FAERS Safety Report 26084155 (Version 2)
Quarter: 2025Q4

REPORT INFORMATION
  Report Type: Report from Study
  Country: US (occurrence: US)
  Receive Date: 20251124
  Receipt Date: 20251212
  Transmission Date: 20260118
  Serious: Yes (Hospitalization)
  Sender: XERIS PHARMACEUTICALS
  Company Number: US-BRIAN CONNER SVP QUALITY AND CHIEF COMPLIANCE OFFICER-2025XER00572

PATIENT
  Sex: Male

DRUGS (2)
  1. KEVEYIS [Suspect]
     Active Substance: DICHLORPHENAMIDE
     Indication: Paralysis
     Dosage: UNK
     Route: 048
     Dates: start: 20191205
  2. KEVEYIS [Suspect]
     Active Substance: DICHLORPHENAMIDE
     Dosage: 50 MG, 1X/DAY, IN THE MORNING
     Route: 048
     Dates: start: 20211205

REACTIONS (5)
  - Neoplasm malignant [Unknown]
  - Illness [Recovered/Resolved]
  - Malaise [Unknown]
  - Product dose omission issue [Unknown]
  - Unevaluable event [Unknown]

NARRATIVE: CASE EVENT DATE: 20250101
